FAERS Safety Report 5076372-4 (Version None)
Quarter: 2006Q3

REPORT INFORMATION
  Report Type: 
  Country: None (occurrence: None)
  Receive Date: 20060807
  Receipt Date: 20060725
  Transmission Date: 20061208
  Serious: Yes (Hospitalization)
  Sender: FDA-Public Use
  Company Number: 2006-145791-NL

PATIENT
  Age: 26 Year
  Sex: Female

DRUGS (2)
  1. CHORIONIC GONADOTROPIN [Suspect]
     Indication: OBESITY
     Dosage: DF
     Dates: start: 20060601, end: 20060713
  2. LEVONORGESTREL AND ETHINYL ESTRADIOL [Suspect]
     Dosage: DF
     Dates: start: 19970101

REACTIONS (2)
  - COAGULOPATHY [None]
  - PULMONARY EMBOLISM [None]
